FAERS Safety Report 4622376-2 (Version None)
Quarter: 2005Q1

REPORT INFORMATION
  Report Type: 
  Country: None (occurrence: None)
  Receive Date: 20050328
  Receipt Date: 20050316
  Transmission Date: 20050727
  Serious: Yes (Other)
  Sender: FDA-Public Use
  Company Number: 2005045765

PATIENT
  Age: 63 Year
  Sex: Male

DRUGS (5)
  1. DILANTIN [Suspect]
     Indication: CONVULSION
     Dosage: 300 MG (100 MG,1 IN 1 D)
  2. VALPROATE SODIUM [Concomitant]
  3. OXYBUTYNIN CHLORIDE [Concomitant]
  4. ASPIRIN [Concomitant]
  5. TRANDOLAPRIL (TRANDOLAPRIL) [Concomitant]

REACTIONS (2)
  - ANTICONVULSANT DRUG LEVEL DECREASED [None]
  - CONVULSION [None]
